FAERS Safety Report 8230109-6 (Version None)
Quarter: 2012Q1

REPORT INFORMATION
  Report Type: 
  Country: None (occurrence: None)
  Receive Date: 20120323
  Receipt Date: 20120320
  Transmission Date: 20120608
  Serious: No
  Sender: FDA-Public Use
  Company Number: US-PFIZER INC-2012072706

PATIENT
  Sex: Male

DRUGS (3)
  1. IBUPROFEN [Suspect]
     Dosage: UNK
  2. VICODIN [Suspect]
     Dosage: UNK
  3. LYRICA [Suspect]
     Indication: NERVE COMPRESSION
     Dosage: 25 MG, 1X/DAY
     Route: 048
     Dates: start: 20120313

REACTIONS (1)
  - DRUG INEFFECTIVE [None]
